FAERS Safety Report 11046737 (Version 2)
Quarter: 2015Q3

REPORT INFORMATION
  Report Type: Spontaneous
  Country: IT (occurrence: IT)
  Receive Date: 20150420
  Receipt Date: 20150817
  Transmission Date: 20151125
  Serious: Yes (Disabling)
  Sender: FDA-Public Use
  Company Number: IT-MERCK-1504ITA017345

PATIENT
  Age: 82 Year
  Sex: Female

DRUGS (2)
  1. DIBASE [Concomitant]
     Active Substance: CHOLECALCIFEROL
     Indication: VITAMIN D DEFICIENCY
     Dosage: STRENGTH: 100000 IU/ML; FORMULATION: INJECTABLE SOLUTION FOR ORAL AND INTRAMUSCULAR USE
     Route: 048
  2. ALENDRONATE SODIUM. [Suspect]
     Active Substance: ALENDRONATE SODIUM
     Indication: METASTASES TO BONE
     Dosage: 70 MG, WEEKLY
     Route: 048
     Dates: start: 19900501, end: 20090501

REACTIONS (3)
  - Fistula [Unknown]
  - Pain in jaw [Unknown]
  - Swelling [Unknown]

NARRATIVE: CASE EVENT DATE: 20131201
